FAERS Safety Report 8608674-6 (Version None)
Quarter: 2012Q3

REPORT INFORMATION
  Report Type: 
  Country: None (occurrence: None)
  Receive Date: 20120821
  Receipt Date: 20120814
  Transmission Date: 20120928
  Serious: Yes (Hospitalization)
  Sender: FDA-Public Use
  Company Number: US-ALEXION PHARMACEUTICALS INC.-A201201487

PATIENT
  Sex: Male
  Weight: 70.3 kg

DRUGS (14)
  1. REVLIMID [Concomitant]
     Indication: PRODUCT USED FOR UNKNOWN INDICATION
     Dosage: 10 MG, QD X 3 WEEKS FOLLOWED BY 1 WEEK OFF
     Route: 048
  2. ARICEPT [Concomitant]
     Dosage: 10 MG AS DIRECTED
     Route: 048
     Dates: start: 20110620
  3. CARTIA XT [Concomitant]
     Dosage: 120 MG, QD AM
     Route: 048
     Dates: start: 20110620
  4. FERROUS SULFATE TAB [Concomitant]
     Dosage: 325 MG, BID
     Route: 048
  5. FOLIC ACID [Concomitant]
     Dosage: 1 DF, QD
     Route: 048
  6. NAMENDA [Concomitant]
     Dosage: 10 MG, QD
     Route: 048
     Dates: start: 20110620
  7. ASPIRIN [Concomitant]
     Dosage: 81 MG, QD
     Route: 048
     Dates: start: 20110620
  8. SOLIRIS [Suspect]
     Indication: PAROXYSMAL NOCTURNAL HAEMOGLOBINURIA
     Dosage: 900 MG, Q2W
     Route: 042
     Dates: start: 20111201
  9. FINASTERIDE [Concomitant]
     Dosage: 5 MG, QD
     Route: 048
     Dates: start: 20110620
  10. SERTRALINE HYDROCHLORIDE [Concomitant]
     Dosage: 100 MG, QD
     Route: 048
     Dates: start: 20110620
  11. SOLIRIS [Suspect]
     Dosage: 600 MG, QW
     Route: 042
     Dates: start: 20111129, end: 20111201
  12. HYDROCHLOROTHIAZIDE [Concomitant]
     Dosage: 25 MG, QD AS DIRECTED
     Route: 048
     Dates: start: 20110620
  13. LEVAQUIN [Concomitant]
     Dosage: 500 MG, QD
     Route: 048
  14. SIMVASTATIN [Concomitant]
     Dosage: 80 MG, QD
     Route: 048
     Dates: start: 20110620

REACTIONS (2)
  - SYNCOPE [None]
  - HAEMOGLOBIN DECREASED [None]
